FAERS Safety Report 6409572-9 (Version None)
Quarter: 2009Q4

REPORT INFORMATION
  Report Type: 
  Country: None (occurrence: None)
  Receive Date: 20091020
  Receipt Date: 20091020
  Transmission Date: 20100525
  Serious: Yes (Other)
  Sender: FDA-Public Use
  Company Number: None

PATIENT
  Age: 28 Year
  Sex: Female
  Weight: 76.2043 kg

DRUGS (1)
  1. FLAVOXATE [Suspect]
     Indication: BLADDER DISORDER

REACTIONS (2)
  - ODYNOPHAGIA [None]
  - UNEVALUABLE EVENT [None]
